FAERS Safety Report 23950128 (Version 1)
Quarter: 2024Q2

REPORT INFORMATION
  Report Type: Spontaneous
  Country: US (occurrence: None)
  Receive Date: 20240606
  Receipt Date: 20240606
  Transmission Date: 20240716
  Serious: Yes (Death, Life-Threatening, Hospitalization, Disabling)
  Sender: FDA-Public Use
  Company Number: None

PATIENT
  Age: 62 Year
  Sex: Male

DRUGS (4)
  1. AMOXICILLIN\CLAVULANATE POTASSIUM [Suspect]
     Active Substance: AMOXICILLIN\CLAVULANATE POTASSIUM
     Indication: Sinusitis
     Dosage: FREQUENCY : TWICE A DAY;?
     Route: 048
     Dates: start: 20240413, end: 20240413
  2. PREDNISONE [Concomitant]
     Active Substance: PREDNISONE
     Dates: start: 20240411, end: 20240413
  3. PANTOPRAZOLE SODIUM [Concomitant]
     Active Substance: PANTOPRAZOLE SODIUM
     Dates: start: 20231226
  4. LOSARTAN [Concomitant]
     Active Substance: LOSARTAN
     Dates: start: 20240103

REACTIONS (3)
  - Cardiac arrest [None]
  - Anaphylactic reaction [None]
  - Brain injury [None]

NARRATIVE: CASE EVENT DATE: 20240413
